FAERS Safety Report 16413006 (Version 3)
Quarter: 2019Q2

REPORT INFORMATION
  Report Type: Spontaneous
  Country: CN (occurrence: CN)
  Receive Date: 20190611
  Receipt Date: 20190613
  Transmission Date: 20190711
  Serious: Yes (Death)
  Sender: FDA-Public Use
  Company Number: CN-JNJFOC-20190608107

PATIENT
  Age: 7 Month
  Sex: Female

DRUGS (4)
  1. MOTRIN INFANTS [Suspect]
     Active Substance: IBUPROFEN
     Route: 048
  2. CEFAMANDOLE NAFATE [Suspect]
     Active Substance: CEFAMANDOLE NAFATE
     Indication: BRONCHITIS
     Route: 041
     Dates: start: 20190528, end: 20190531
  3. VITAMIN C [Suspect]
     Active Substance: ASCORBIC ACID
     Indication: BRONCHITIS
     Route: 041
     Dates: start: 20190528, end: 20190531
  4. MOTRIN INFANTS [Suspect]
     Active Substance: IBUPROFEN
     Indication: PYREXIA
     Route: 048
     Dates: start: 20190531, end: 20190531

REACTIONS (3)
  - Incorrect dose administered [Unknown]
  - Off label use [Unknown]
  - Death [Fatal]

NARRATIVE: CASE EVENT DATE: 20190531
